FAERS Safety Report 20206154 (Version 1)
Quarter: 2021Q4

REPORT INFORMATION
  Report Type: Spontaneous
  Country: US (occurrence: US)
  Receive Date: 20211220
  Receipt Date: 20211220
  Transmission Date: 20220303
  Serious: No
  Sender: FDA-Public Use
  Company Number: US-MICRO LABS LIMITED-ML2021-02572

PATIENT
  Age: 63 Year
  Sex: Female

DRUGS (3)
  1. KETOROLAC TROMETHAMINE [Suspect]
     Active Substance: KETOROLAC TROMETHAMINE
     Indication: Intraocular pressure increased
     Dosage: 4 DROPS PER DAY IN RIGHT EYE, PACK SIZE 5ML
     Route: 047
  2. OFLOXACIN [Concomitant]
     Active Substance: OFLOXACIN
  3. PREDNISOLONE [Concomitant]
     Active Substance: PREDNISOLONE

REACTIONS (2)
  - Product dose omission issue [Unknown]
  - Product container issue [Unknown]

NARRATIVE: CASE EVENT DATE: 20211015
